FAERS Safety Report 6977439-3 (Version None)
Quarter: 2010Q3

REPORT INFORMATION
  Report Type: 
  Country: None (occurrence: None)
  Receive Date: 20100910
  Receipt Date: 20100901
  Transmission Date: 20110219
  Serious: Yes (Other)
  Sender: FDA-Public Use
  Company Number: US-AMGEN-KDL426416

PATIENT
  Sex: Male
  Weight: 83.5 kg

DRUGS (4)
  1. PROLIA [Suspect]
     Indication: OSTEOPOROSIS POSTMENOPAUSAL
     Route: 058
     Dates: start: 20100708
  2. ALLOPURINOL [Concomitant]
  3. COLCHICINE [Concomitant]
  4. CALCIUM WITH VITAMIN D [Concomitant]

REACTIONS (7)
  - DIZZINESS [None]
  - DYSARTHRIA [None]
  - FEELING ABNORMAL [None]
  - GOUT [None]
  - HYPOCALCAEMIA [None]
  - NEUROLOGICAL SYMPTOM [None]
  - TONGUE DISORDER [None]
